FAERS Safety Report 5155199-9 (Version None)
Quarter: 2006Q4

REPORT INFORMATION
  Report Type: 
  Country: None (occurrence: None)
  Receive Date: 20061121
  Receipt Date: 20061114
  Transmission Date: 20070319
  Serious: Yes (Other)
  Sender: FDA-Public Use
  Company Number: US-JNJFOC-20061101470

PATIENT
  Sex: Female
  Weight: 77.11 kg

DRUGS (6)
  1. TOPAMAX [Suspect]
     Indication: NERVE INJURY
     Route: 048
  2. TOPAMAX [Suspect]
     Indication: FIBROMYALGIA
     Route: 048
  3. PRINIVIL [Concomitant]
  4. NEXIUM [Concomitant]
  5. INSULIN [Concomitant]
  6. HYDROCHLOROTHIAZIDE [Concomitant]

REACTIONS (5)
  - ABDOMINAL PAIN [None]
  - DIARRHOEA [None]
  - EATING DISORDER [None]
  - PANCREATIC MASS [None]
  - WEIGHT DECREASED [None]
